FAERS Safety Report 5470632-0 (Version None)
Quarter: 2007Q3

REPORT INFORMATION
  Report Type: 
  Country: None (occurrence: None)
  Receive Date: 20070820
  Receipt Date: 20070502
  Transmission Date: 20080115
  Serious: No
  Sender: FDA-Public Use
  Company Number: WAES 0705USA00639

PATIENT
  Age: 58 Year
  Sex: Female

DRUGS (3)
  1. JANUVIA [Suspect]
     Indication: BLOOD GLUCOSE
     Dosage: 100 MG/DAILY/PO 50 MG/DAILY PO
     Route: 048
  2. GLIPIZIDE [Concomitant]
  3. METFORMIN [Concomitant]

REACTIONS (3)
  - MUSCLE SPASMS [None]
  - MUSCULOSKELETAL STIFFNESS [None]
  - PAIN [None]
